FAERS Safety Report 4962471-1 (Version None)
Quarter: 2006Q2

REPORT INFORMATION
  Report Type: 
  Country: None (occurrence: None)
  Receive Date: 20060404
  Receipt Date: 20051026
  Transmission Date: 20061013
  Serious: Yes (Hospitalization, Disabling)
  Sender: FDA-Public Use
  Company Number: US-MERCK-0510USA09494

PATIENT
  Age: 52 Year
  Sex: Female
  Weight: 73 kg

DRUGS (22)
  1. VIOXX [Suspect]
     Indication: ARTHRITIS
     Route: 048
     Dates: start: 20010315, end: 20040930
  2. ASPIRIN [Concomitant]
     Indication: ANTICOAGULANT THERAPY
     Route: 065
  3. COMBIVENT [Concomitant]
     Indication: LUNG DISORDER
     Route: 065
  4. DEPTRAN (DOXEPIN HYDROCHLORIDE) [Concomitant]
     Indication: PAIN
     Route: 065
  5. FLEXERIL [Concomitant]
     Indication: PAIN
     Route: 065
  6. HUMALOG [Concomitant]
     Indication: DIABETES MELLITUS
     Route: 065
  7. LISINOPRIL [Concomitant]
     Indication: HYPERTENSION
     Route: 065
  8. LISINOPRIL [Concomitant]
     Indication: CARDIAC DISORDER
     Route: 065
  9. MAXZIDE [Concomitant]
     Indication: HYPERTENSION
     Route: 065
  10. MAXZIDE [Concomitant]
     Indication: POLYURIA
     Route: 065
  11. METOPROLOL [Concomitant]
     Indication: HYPERTENSION
     Route: 065
  12. METOPROLOL [Concomitant]
     Indication: CARDIAC DISORDER
     Route: 065
  13. PLENDIL [Concomitant]
     Indication: HYPERTENSION
     Route: 065
  14. PLENDIL [Concomitant]
     Indication: CARDIAC DISORDER
     Route: 065
  15. PRAVACHOL [Concomitant]
     Indication: BLOOD CHOLESTEROL
     Route: 065
  16. PREMARIN [Concomitant]
     Indication: OESTROGEN REPLACEMENT THERAPY
     Route: 065
  17. PROTONIX [Concomitant]
     Indication: GASTROOESOPHAGEAL REFLUX DISEASE
     Route: 065
  18. ROCALTROL [Concomitant]
     Indication: ROUTINE HEALTH MAINTENANCE
     Route: 065
  19. VALIUM [Concomitant]
     Indication: ANXIETY
     Route: 065
  20. VICODIN [Concomitant]
     Indication: PAIN
     Route: 065
  21. XENICAL [Concomitant]
     Indication: OBESITY
     Route: 065
  22. ZOLOFT [Concomitant]
     Indication: DEPRESSION
     Route: 065

REACTIONS (9)
  - BACK DISORDER [None]
  - CORONARY ARTERY DISEASE [None]
  - DEPRESSION [None]
  - DIABETES MELLITUS [None]
  - FIBROMYALGIA [None]
  - PARATHYROID DISORDER [None]
  - SLEEP DISORDER [None]
  - STAPHYLOCOCCAL INFECTION [None]
  - THYROID DISORDER [None]
